FAERS Safety Report 5688038-8 (Version None)
Quarter: 2008Q1

REPORT INFORMATION
  Report Type: 
  Country: None (occurrence: None)
  Receive Date: 20080328
  Receipt Date: 20080317
  Transmission Date: 20080703
  Serious: No
  Sender: FDA-Public Use
  Company Number: US-BAXTER-2008BH002424

PATIENT
  Sex: Female

DRUGS (2)
  1. HEPARIN SODIUM [Suspect]
     Indication: DEEP VEIN THROMBOSIS
     Route: 065
     Dates: start: 20080101, end: 20080201
  2. HEPARIN SODIUM [Suspect]
     Route: 065
     Dates: start: 20080201, end: 20080314

REACTIONS (7)
  - BURNING SENSATION [None]
  - CHEST PAIN [None]
  - DRUG EXPOSURE DURING PREGNANCY [None]
  - DYSPNOEA [None]
  - FATIGUE [None]
  - FLUSHING [None]
  - HEADACHE [None]
